FAERS Safety Report 6376596-X (Version None)
Quarter: 2009Q3

REPORT INFORMATION
  Report Type: 
  Country: None (occurrence: None)
  Receive Date: 20090925
  Receipt Date: 20090916
  Transmission Date: 20100115
  Serious: Yes (Hospitalization)
  Sender: FDA-Public Use
  Company Number: PHHY2009IT40316

PATIENT
  Sex: Male

DRUGS (9)
  1. TEGRETOL [Suspect]
     Indication: EPILEPSY
     Dosage: 400 MG DAILY
     Route: 048
     Dates: start: 20090818, end: 20090823
  2. PANTORC [Suspect]
     Indication: ABDOMINAL PAIN UPPER
     Dosage: 40 MG
     Route: 048
     Dates: start: 20090808, end: 20090823
  3. PANTORC [Suspect]
  4. MADOPAR [Concomitant]
     Indication: PARKINSON'S DISEASE
     Dosage: 100/25 MG, UNK
     Route: 048
  5. MADOPAR [Concomitant]
     Dosage: 200/25 MG, UNK
     Route: 048
     Dates: start: 20050101, end: 20090903
  6. MIRAPEX [Concomitant]
     Indication: PARKINSON'S DISEASE
     Dosage: 0.54 MG DAILY
     Route: 048
     Dates: start: 20050201, end: 20090903
  7. SEROQUEL [Concomitant]
     Indication: GAMBLING
     Dosage: 12.5 MG DAILY
     Route: 048
     Dates: start: 20090501, end: 20090903
  8. RIVOTRIL [Concomitant]
     Indication: EPILEPSY
     Dosage: 15 GTT DAILY
     Route: 048
     Dates: start: 20080401, end: 20090903
  9. TAPAZOLE [Concomitant]
     Indication: HYPERTHYROIDISM
     Dosage: UNK
     Route: 048
     Dates: start: 20090701, end: 20090903

REACTIONS (2)
  - LICHENOID KERATOSIS [None]
  - SKIN EXFOLIATION [None]
